FAERS Safety Report 5590991-8 (Version None)
Quarter: 2008Q1

REPORT INFORMATION
  Report Type: 
  Country: None (occurrence: None)
  Receive Date: 20080115
  Receipt Date: 20080103
  Transmission Date: 20080703
  Serious: Yes (Other)
  Sender: FDA-Public Use
  Company Number: US-BAYER-US-2007-006378

PATIENT
  Age: 43 Year
  Sex: Male

DRUGS (44)
  1. MAGNEVIST [Suspect]
     Indication: NUCLEAR MAGNETIC RESONANCE IMAGING
     Dosage: UNIT DOSE: 20 ML
     Route: 042
     Dates: start: 20011227, end: 20011227
  2. MAGNEVIST [Suspect]
     Dosage: UNIT DOSE: 60 ML
     Route: 042
     Dates: start: 20020505, end: 20020505
  3. MAGNEVIST [Suspect]
     Dosage: UNIT DOSE: 20 ML
     Route: 042
     Dates: start: 20021111, end: 20021111
  4. MAGNEVIST [Suspect]
     Dosage: UNIT DOSE: 20 ML
     Route: 042
     Dates: start: 20030918, end: 20030918
  5. MAGNEVIST [Suspect]
     Route: 042
     Dates: start: 20000426, end: 20000426
  6. MAGNEVIST [Suspect]
     Route: 042
     Dates: start: 20020519, end: 20020519
  7. MAGNEVIST [Suspect]
     Dosage: UNIT DOSE: 20 ML
     Route: 042
     Dates: start: 20060608, end: 20060608
  8. MAGNEVIST [Suspect]
     Dosage: UNIT DOSE: 20 ML
     Route: 042
     Dates: start: 20030917, end: 20030917
  9. MAGNEVIST [Suspect]
     Dosage: UNIT DOSE: 20 ML
     Route: 042
     Dates: start: 20030827, end: 20030827
  10. MAGNEVIST [Suspect]
     Dosage: UNIT DOSE: 20 ML
     Route: 042
     Dates: start: 20050801, end: 20050801
  11. MAGNEVIST [Suspect]
     Route: 042
     Dates: start: 20020519, end: 20020519
  12. MAGNEVIST [Suspect]
     Route: 042
     Dates: start: 20001026, end: 20001026
  13. MAGNEVIST [Suspect]
     Dosage: UNIT DOSE: 60 ML
     Route: 042
     Dates: start: 20060427, end: 20060427
  14. MAGNEVIST [Suspect]
     Dosage: UNIT DOSE: 20 ML
     Route: 042
     Dates: start: 20030828, end: 20030828
  15. PHOSLO [Concomitant]
     Dosage: UNIT DOSE: 2001 MG
     Route: 048
  16. RENAGEL [Concomitant]
     Dosage: UNIT DOSE: 3200 MG
     Route: 048
  17. RENAGEL [Concomitant]
     Dosage: UNIT DOSE: 3200 MG
  18. LIPITOR [Concomitant]
     Dosage: UNIT DOSE: 80 MG
     Route: 048
  19. CELEXA [Concomitant]
     Dosage: UNIT DOSE: 20 MG
     Route: 048
  20. BENADRYL ^PFIZER WARNER-LAMBERT^ [Concomitant]
     Indication: PRURITUS
     Dosage: UNIT DOSE: 25 MG
     Route: 048
  21. NEURONTIN [Concomitant]
     Route: 048
  22. NEURONTIN [Concomitant]
  23. GEMFIBROZIL [Concomitant]
     Dosage: UNIT DOSE: 600 MG
  24. INSULIN GLARGINE [Concomitant]
     Route: 058
  25. INSULIN GLARGINE [Concomitant]
     Route: 058
  26. ATIVAN [Concomitant]
     Route: 048
  27. METHADONE HCL [Concomitant]
     Indication: PAIN IN EXTREMITY
     Dosage: UNIT DOSE: 5 MG
     Route: 048
  28. TOPROL-XL [Concomitant]
     Dosage: UNIT DOSE: 100 MG
     Route: 048
  29. NEPHROCAPS [Concomitant]
     Route: 048
  30. PERCOCET [Concomitant]
     Route: 048
  31. RANITIDINE [Concomitant]
     Dosage: UNIT DOSE: 150 MG
     Route: 048
  32. REQUIP [Concomitant]
     Dosage: UNIT DOSE: 2 MG
     Route: 048
  33. COUMADIN [Concomitant]
     Dosage: UNIT DOSE: 5 MG
     Route: 048
  34. COUMADIN [Concomitant]
     Route: 048
  35. COUMADIN [Concomitant]
     Dosage: UNIT DOSE: 7.5 MG
     Route: 048
  36. LISINOPRIL [Concomitant]
     Dosage: UNIT DOSE: 40 MG
     Route: 048
  37. LISINOPRIL [Concomitant]
     Dosage: UNIT DOSE: 5 MG
  38. REGULAR INSULIN [Concomitant]
     Route: 058
  39. CLONIDINE [Concomitant]
     Dosage: UNIT DOSE: 0.2 MG
     Route: 062
  40. ULTRAVIST 300 [Concomitant]
     Indication: FISTULOGRAM
     Dosage: UNIT DOSE: 120 ML
     Dates: start: 20070309, end: 20070309
  41. OXYCODONE [Concomitant]
     Dosage: UNIT DOSE: 40 MG
     Route: 048
  42. OXYCODONE [Concomitant]
     Dosage: UNIT DOSE: 10 MG
  43. QUININE SULFATE [Concomitant]
     Dosage: UNIT DOSE: 325 MG
  44. LANTUS [Concomitant]
     Route: 058

REACTIONS (44)
  - ANXIETY [None]
  - ARTHRITIS BACTERIAL [None]
  - AZOTAEMIA [None]
  - BLOOD GLUCOSE ABNORMAL [None]
  - BLOOD GLUCOSE FLUCTUATION [None]
  - CELLULITIS [None]
  - CHEST PAIN [None]
  - COUGH [None]
  - DEPRESSED LEVEL OF CONSCIOUSNESS [None]
  - DIABETIC NEPHROPATHY [None]
  - DIALYSIS [None]
  - DYSPNOEA [None]
  - ENCEPHALOPATHY [None]
  - EXCORIATION [None]
  - FLUID OVERLOAD [None]
  - HALLUCINATION [None]
  - HYPERGLYCAEMIA [None]
  - HYPERKALAEMIA [None]
  - HYPERPARATHYROIDISM [None]
  - HYPERPHOSPHATAEMIA [None]
  - HYPERTENSIVE CRISIS [None]
  - HYPOGLYCAEMIA [None]
  - MUSCLE SPASMS [None]
  - NEPHROGENIC SYSTEMIC FIBROSIS [None]
  - NEUROPATHIC ARTHROPATHY [None]
  - OEDEMA [None]
  - OLIGURIA [None]
  - OSTEOMYELITIS [None]
  - PAIN [None]
  - PETECHIAE [None]
  - PHARYNGOLARYNGEAL PAIN [None]
  - POSTOPERATIVE WOUND INFECTION [None]
  - PRESYNCOPE [None]
  - PROTEINURIA [None]
  - PRURITUS [None]
  - PYREXIA [None]
  - RENAL FAILURE ACUTE [None]
  - RENAL FAILURE CHRONIC [None]
  - RHABDOMYOLYSIS [None]
  - SCAB [None]
  - SCRATCH [None]
  - SKIN EXFOLIATION [None]
  - TREATMENT NONCOMPLIANCE [None]
  - WEIGHT DECREASED [None]
